FAERS Safety Report 20504396 (Version 2)
Quarter: 2022Q2

REPORT INFORMATION
  Report Type: Report from Study
  Country: US (occurrence: None)
  Receive Date: 20220222
  Receipt Date: 20220429
  Transmission Date: 20220721
  Serious: Yes (Other)
  Sender: FDA-Public Use
  Company Number: US-Merck Healthcare KGaA-9300502

PATIENT
  Age: 63 Year
  Sex: Female
  Weight: 39 kg

DRUGS (1)
  1. REBIF [Suspect]
     Active Substance: INTERFERON BETA-1A
     Indication: Multiple sclerosis
     Route: 058
     Dates: start: 20140619, end: 20220209

REACTIONS (8)
  - Loss of consciousness [Unknown]
  - Fall [Unknown]
  - Eye haemorrhage [Unknown]
  - Eye swelling [Unknown]
  - Exophthalmos [Unknown]
  - Eye movement disorder [Not Recovered/Not Resolved]
  - Vision blurred [Not Recovered/Not Resolved]
  - Product administration interrupted [Unknown]

NARRATIVE: CASE EVENT DATE: 20220209
